FAERS Safety Report 6767260-3 (Version None)
Quarter: 2010Q2

REPORT INFORMATION
  Report Type: 
  Country: None (occurrence: None)
  Receive Date: 20100614
  Receipt Date: 20100531
  Transmission Date: 20101027
  Serious: Yes (Hospitalization)
  Sender: FDA-Public Use
  Company Number: DE-RANBAXY-2010RR-34461

PATIENT
  Age: 81 Year
  Sex: Male
  Weight: 98 kg

DRUGS (12)
  1. VANCOMYCIN [Suspect]
     Indication: ABSCESS
     Dosage: 1000 MG, BID
     Route: 042
     Dates: start: 20090319, end: 20090330
  2. CLINDAMYCIN [Suspect]
     Indication: SPONDYLITIS
     Dosage: 600 MG, TID
     Route: 048
     Dates: start: 20090204, end: 20090320
  3. RAMIPRIL [Concomitant]
     Indication: HYPERTENSION
     Dosage: 2.5 MG, BID
     Route: 048
     Dates: start: 20081201, end: 20090315
  4. SPIRONOLACTONE [Concomitant]
     Indication: ASCITES
     Dosage: 100 MG, QD
     Route: 048
     Dates: start: 20080701
  5. BISOPROLOL [Concomitant]
     Indication: HYPERTENSION
     Dosage: 2.5 MG, QD
     Route: 048
     Dates: start: 20081201, end: 20090316
  6. COLDASTOP [Concomitant]
     Indication: EPISTAXIS
     Dosage: 1 DF, TID
     Route: 045
     Dates: start: 20090201
  7. PERENTEROL [Concomitant]
     Indication: DISBACTERIOSIS
     Dosage: 50 MG, BID
     Route: 048
     Dates: start: 20090201, end: 20090408
  8. ASPIRIN [Concomitant]
     Indication: CARDIOVASCULAR EVENT PROPHYLAXIS
     Dosage: 100 MG, QD
     Route: 048
     Dates: start: 19900101
  9. TOREM/GFR [Concomitant]
     Indication: HYPERTENSION
     Dosage: UNK
     Route: 048
     Dates: start: 20080701
  10. TAMSULOSIN HCL [Concomitant]
     Indication: BENIGN PROSTATIC HYPERPLASIA
     Dosage: 0.4 MG, QD
     Route: 048
     Dates: start: 20080701
  11. CIPRALEX/DEN [Concomitant]
     Indication: RESTLESSNESS
     Dosage: 20 MG, QD
     Route: 048
     Dates: start: 20090201
  12. NOVALGIN/SCH [Concomitant]
     Indication: PAIN
     Dosage: 500 MG, QD
     Route: 048
     Dates: start: 20090201

REACTIONS (2)
  - PSEUDOMEMBRANOUS COLITIS [None]
  - RENAL FAILURE ACUTE [None]
